FAERS Safety Report 6111452-3 (Version None)
Quarter: 2009Q1

REPORT INFORMATION
  Report Type: 
  Country: None (occurrence: None)
  Receive Date: 20090311
  Receipt Date: 20090303
  Transmission Date: 20090719
  Serious: Yes (Other)
  Sender: FDA-Public Use
  Company Number: JP-JNJFOC-20090301487

PATIENT
  Sex: Male

DRUGS (11)
  1. RISPERDAL [Suspect]
     Route: 048
  2. RISPERDAL [Suspect]
     Indication: DRUG USE FOR UNKNOWN INDICATION
     Route: 048
  3. CHLORPROMAZINE [Suspect]
     Indication: DRUG USE FOR UNKNOWN INDICATION
     Route: 065
  4. BENZALIN [Concomitant]
     Route: 048
  5. LENDORMIN [Concomitant]
     Route: 048
  6. HALCION [Concomitant]
     Route: 048
  7. DEPAKENE [Concomitant]
     Route: 048
  8. LIMAS [Concomitant]
     Route: 048
  9. PAXIL [Concomitant]
     Route: 048
  10. PURGATIVES AND CLYSTERS [Concomitant]
     Route: 065
  11. STABILIZER [Concomitant]
     Route: 065

REACTIONS (6)
  - BENIGN PROSTATIC HYPERPLASIA [None]
  - DIZZINESS [None]
  - ENURESIS [None]
  - HYPOTONIA [None]
  - NERVOUS SYSTEM DISORDER [None]
  - OFF LABEL USE [None]
